FAERS Safety Report 17298444 (Version 2)
Quarter: 2020Q1

REPORT INFORMATION
  Report Type: Report from Study
  Country: CA (occurrence: CA)
  Receive Date: 20200121
  Receipt Date: 20200303
  Transmission Date: 20200409
  Serious: Yes (Hospitalization, Other)
  Sender: FDA-Public Use
  Company Number: CA-BAYER-2019-222281

PATIENT
  Sex: Male

DRUGS (3)
  1. STIVARGA [Suspect]
     Active Substance: REGORAFENIB
     Indication: METASTASES TO LUNG
  2. STIVARGA [Suspect]
     Active Substance: REGORAFENIB
     Indication: METASTASES TO PERITONEUM
  3. STIVARGA [Suspect]
     Active Substance: REGORAFENIB
     Indication: RECTAL CANCER STAGE IV
     Dosage: 80 MG, QD 1 WEEK

REACTIONS (4)
  - Hospitalisation [None]
  - Product dose omission [None]
  - Off label use [None]
  - Rectal cancer [Unknown]
